FAERS Safety Report 7617509-X (Version None)
Quarter: 2011Q3

REPORT INFORMATION
  Report Type: 
  Country: None (occurrence: None)
  Receive Date: 20110718
  Receipt Date: 20110705
  Transmission Date: 20111222
  Serious: Yes (Other)
  Sender: FDA-Public Use
  Company Number: FR-ELI_LILLY_AND_COMPANY-FR201107000848

PATIENT
  Sex: Female

DRUGS (5)
  1. PROZAC [Suspect]
     Dosage: UNK
     Route: 048
     Dates: start: 20050101
  2. ISOMERIDE [Concomitant]
     Indication: OVERWEIGHT
     Dosage: UNK
     Route: 048
     Dates: start: 19970101
  3. VALSARTAN  AND HYDROCHLOROTHIAZIDE [Concomitant]
  4. MEDIATOR [Concomitant]
     Indication: HYPERTRIGLYCERIDAEMIA
     Dosage: UNK
     Route: 048
     Dates: start: 20090601
  5. BISOPROLOL [Concomitant]

REACTIONS (2)
  - AORTIC VALVE INCOMPETENCE [None]
  - MITRAL VALVE INCOMPETENCE [None]
